FAERS Safety Report 7047873-4 (Version None)
Quarter: 2010Q4

REPORT INFORMATION
  Report Type: 
  Country: None (occurrence: None)
  Receive Date: 20101015
  Receipt Date: 20101007
  Transmission Date: 20110411
  Serious: Yes (Other)
  Sender: FDA-Public Use
  Company Number: GB-TEVA-251161ISR

PATIENT
  Age: 79 Year
  Sex: Female
  Weight: 63 kg

DRUGS (1)
  1. TRIMETHOPRIM [Suspect]
     Route: 048
     Dates: start: 20100927, end: 20100928

REACTIONS (4)
  - CHILLS [None]
  - DYSPNOEA [None]
  - OROPHARYNGEAL PAIN [None]
  - TREMOR [None]
